FAERS Safety Report 5561109-2 (Version None)
Quarter: 2007Q4

REPORT INFORMATION
  Report Type: 
  Country: None (occurrence: None)
  Receive Date: 20071215
  Receipt Date: 20071101
  Transmission Date: 20080405
  Serious: No
  Sender: FDA-Public Use
  Company Number: US-AMGEN-KDL250402

PATIENT
  Sex: Male

DRUGS (2)
  1. ENBREL [Suspect]
     Indication: ANKYLOSING SPONDYLITIS
     Route: 058
     Dates: start: 20061009, end: 20070725
  2. ALEVE [Concomitant]

REACTIONS (4)
  - AMNESIA [None]
  - COGNITIVE DISORDER [None]
  - DISORIENTATION [None]
  - HEADACHE [None]
